FAERS Safety Report 19161237 (Version 1)
Quarter: 2021Q2

REPORT INFORMATION
  Report Type: Spontaneous
  Country: GB (occurrence: GB)
  Receive Date: 20210421
  Receipt Date: 20210421
  Transmission Date: 20210717
  Serious: Yes (Disabling, Other)
  Sender: FDA-Public Use
  Company Number: GB-SUN PHARMACEUTICAL INDUSTRIES LTD-2021RR-292421

PATIENT
  Age: 49 Year
  Sex: Female
  Weight: 64 kg

DRUGS (1)
  1. LANSOPRAZOLE. [Suspect]
     Active Substance: LANSOPRAZOLE
     Indication: DYSPEPSIA
     Dosage: 15 MG TWO MONTHS, 30 MG ONE MONTH, 60MG 5MONTHS
     Route: 048
     Dates: start: 20141125, end: 20150620

REACTIONS (2)
  - Product use complaint [Recovered/Resolved with Sequelae]
  - Dry throat [Recovered/Resolved with Sequelae]

NARRATIVE: CASE EVENT DATE: 20150119
